FAERS Safety Report 6020396-7 (Version None)
Quarter: 2008Q4

REPORT INFORMATION
  Report Type: 
  Country: None (occurrence: None)
  Receive Date: 20081226
  Receipt Date: 20081223
  Transmission Date: 20090506
  Serious: Yes (Hospitalization)
  Sender: FDA-Public Use
  Company Number: US-BRISTOL-MYERS SQUIBB COMPANY-14398606

PATIENT
  Age: 69 Year
  Sex: Female

DRUGS (11)
  1. CYTOXAN [Suspect]
     Indication: BREAST CANCER
     Dosage: THERAPY START DATE: 13-MAR-2008- 600 MG/M2;C3 25% REDUCTIN IN DOSE DURATION: 9 WEEKS 1 DAY
     Route: 042
     Dates: start: 20080313, end: 20080313
  2. TAXOTERE [Suspect]
     Indication: BREAST CANCER
     Dosage: THERAPY START DATE: 13-MAR-2008 DURATION: 9 WEEKS 1 DAY SOLUTION FOR INJ
     Dates: start: 20080313, end: 20080313
  3. LEVOXYL [Concomitant]
  4. ARIMIDEX [Concomitant]
  5. ERGOCALCIFEROL [Concomitant]
  6. CALCIUM PHOSPHATE [Concomitant]
  7. CALCIUM + VITAMIN D [Concomitant]
  8. ASPIRIN [Concomitant]
  9. NEULASTA [Concomitant]
  10. ANTIBIOTICS [Concomitant]
     Dosage: PROPHYLACTIC
  11. SODIUM LACTATE IN PLASTIC CONTAINER [Concomitant]

REACTIONS (4)
  - ABDOMINAL INFECTION [None]
  - DIVERTICULITIS [None]
  - INTESTINAL PERFORATION [None]
  - PERITONITIS [None]
